FAERS Safety Report 19237280 (Version 1)
Quarter: 2021Q2

REPORT INFORMATION
  Report Type: Spontaneous
  Country: US (occurrence: US)
  Receive Date: 20210510
  Receipt Date: 20210510
  Transmission Date: 20210717
  Serious: Yes (Other)
  Sender: FDA-Public Use
  Company Number: US-AMGEN-USASP2021067767

PATIENT
  Sex: Female

DRUGS (1)
  1. PROLIA [Suspect]
     Active Substance: DENOSUMAB
     Indication: OSTEOPOROSIS
     Dosage: UNK, Q6MO
     Route: 065
     Dates: start: 2019

REACTIONS (5)
  - Pain in jaw [Unknown]
  - Wrist fracture [Unknown]
  - Pelvic fracture [Unknown]
  - Tooth disorder [Not Recovered/Not Resolved]
  - Spinal fracture [Unknown]
